FAERS Safety Report 9665597 (Version 2)
Quarter: 2013Q4

REPORT INFORMATION
  Report Type: Spontaneous
  Country: US (occurrence: US)
  Receive Date: 20131104
  Receipt Date: 20131217
  Transmission Date: 20140711
  Serious: Yes (Other)
  Sender: FDA-Public Use
  Company Number: US-AMGEN-USASP2013076431

PATIENT
  Age: 68 Year
  Sex: Female
  Weight: 50.79 kg

DRUGS (6)
  1. PROLIA [Suspect]
     Indication: OSTEOPOROSIS
     Dosage: 60 MG, UNK
     Route: 030
     Dates: start: 20130830
  2. EVISTA [Concomitant]
     Indication: OSTEOPOROSIS
     Dosage: 60 MG, QD
     Route: 048
  3. MONTELUKAST [Concomitant]
     Indication: ASTHMA
     Dosage: 10 MG, QD
     Route: 048
     Dates: start: 2008
  4. CALCIUM [Concomitant]
     Indication: OSTEOPOROSIS
     Dosage: 1025 MG, QD
     Route: 048
     Dates: start: 1989
  5. VITAMIN D                          /00107901/ [Concomitant]
     Indication: OSTEOPOROSIS
     Dosage: 1800 IU, QD
     Route: 048
     Dates: start: 1989
  6. ECOTRIN [Concomitant]
     Indication: PROPHYLAXIS
     Dosage: 81 MG, QD
     Route: 048
     Dates: start: 2012

REACTIONS (3)
  - Palpitations [Recovered/Resolved]
  - Supraventricular extrasystoles [Unknown]
  - Incorrect route of drug administration [Unknown]
